FAERS Safety Report 6807502-9 (Version None)
Quarter: 2010Q2

REPORT INFORMATION
  Report Type: 
  Country: None (occurrence: None)
  Receive Date: 20100629
  Receipt Date: 20081029
  Transmission Date: 20101027
  Serious: No
  Sender: FDA-Public Use
  Company Number: US-PFIZER INC-2008090453

PATIENT
  Sex: Male
  Weight: 94.35 kg

DRUGS (6)
  1. TIKOSYN [Suspect]
     Indication: MYOCARDIAL INFARCTION
     Dates: start: 20071103
  2. TIKOSYN [Suspect]
     Indication: HEART RATE IRREGULAR
  3. THERAPEUTIC RADIOPHARMACEUTICALS [Suspect]
     Indication: BONE SCAN
     Dates: start: 20081001, end: 20081001
  4. COREG [Concomitant]
  5. ATORVASTATIN [Concomitant]
  6. ANTIHYPERTENSIVES [Concomitant]

REACTIONS (2)
  - ATRIAL FIBRILLATION [None]
  - PAIN IN EXTREMITY [None]
